FAERS Safety Report 8192355-X (Version None)
Quarter: 2012Q1

REPORT INFORMATION
  Report Type: 
  Country: None (occurrence: None)
  Receive Date: 20120308
  Receipt Date: 20120224
  Transmission Date: 20120608
  Serious: Yes (Other)
  Sender: FDA-Public Use
  Company Number: DE-AMGEN-DEUCT2011054076

PATIENT
  Age: 56 Year
  Sex: Female

DRUGS (1)
  1. ETANERCEPT [Suspect]
     Indication: RHEUMATOID ARTHRITIS
     Dosage: UNK
     Dates: start: 20110509

REACTIONS (5)
  - SKIN REACTION [None]
  - VERTIGO [None]
  - URINARY TRACT INFECTION [None]
  - DIZZINESS [None]
  - DRUG INEFFECTIVE [None]
